FAERS Safety Report 9372382 (Version 2)
Quarter: 2013Q3

REPORT INFORMATION
  Report Type: Spontaneous
  Country: DE (occurrence: DE)
  Receive Date: 20130627
  Receipt Date: 20130724
  Transmission Date: 20140515
  Serious: Yes (Other)
  Sender: FDA-Public Use
  Company Number: DE-AMGEN-DEUSP2013044997

PATIENT
  Age: 78 Year
  Sex: Female
  Weight: 58 kg

DRUGS (3)
  1. PROLIA [Suspect]
     Indication: PRODUCT USED FOR UNKNOWN INDICATION
     Dosage: UNK, 1X
     Dates: start: 20111006
  2. OMEPRAZOLE [Concomitant]
     Indication: GASTROOESOPHAGEAL REFLUX DISEASE
  3. ASS [Concomitant]
     Indication: CORONARY ARTERY DISEASE

REACTIONS (1)
  - Cutaneous lupus erythematosus [Recovered/Resolved]
